FAERS Safety Report 9799468 (Version 1)
Quarter: 2014Q1

REPORT INFORMATION
  Report Type: Spontaneous
  Country: US (occurrence: None)
  Receive Date: 20140103
  Receipt Date: 20140103
  Transmission Date: 20141002
  Serious: Yes (Hospitalization)
  Sender: FDA-Public Use
  Company Number: None

PATIENT
  Age: 69 Year
  Sex: Male

DRUGS (11)
  1. ZYTIGA, 250 MG, JANSSEN [Suspect]
     Indication: PROSTATE CANCER
     Route: 048
  2. ASPIRIN [Concomitant]
  3. INSULIN [Concomitant]
  4. LUPRON [Concomitant]
  5. METFORMIN [Concomitant]
  6. METOPROLOL [Concomitant]
  7. MULTIVITAMIN [Concomitant]
  8. PREDNISONE [Concomitant]
  9. PRILOSEC [Concomitant]
  10. SIMVASTATIN [Concomitant]
  11. RAPAFLO [Concomitant]

REACTIONS (2)
  - Sepsis [None]
  - Hypomagnesaemia [None]
